FAERS Safety Report 16121951 (Version 2)
Quarter: 2019Q4

REPORT INFORMATION
  Report Type: Spontaneous
  Country: DE (occurrence: DE)
  Receive Date: 20190327
  Receipt Date: 20191113
  Transmission Date: 20200122
  Serious: Yes (Hospitalization, Other)
  Sender: FDA-Public Use
  Company Number: DE-TEVA-2019-DE-1028843

PATIENT
  Sex: Female

DRUGS (6)
  1. DIAZEPAM-RATIOPHARM 10 MG/ML TROPFEN [Suspect]
     Active Substance: DIAZEPAM
     Dosage: 31 DOSAGE FORMS DAILY; ONE DOSAGE FORM IS ONE DROP, 13-9-9 DROPS
  2. DIAZEPAM-RATIOPHARM 10 MG/ML TROPFEN [Suspect]
     Active Substance: DIAZEPAM
     Indication: SLEEP DISORDER
     Dosage: 2 DOSAGE FORMS DAILY; ONE DOSAGE FORM IS ONE DROP
     Dates: start: 2005, end: 2019
  3. RASILEZ [Concomitant]
     Active Substance: ALISKIREN
     Indication: HYPERTENSION
     Dosage: CURRENTLY 300 MG, EARLIER 150 MG
  4. DIAZEPAM-RATIOPHARM 10 MG/ML TROPFEN [Suspect]
     Active Substance: DIAZEPAM
     Dosage: 50 DOSAGE FORMS DAILY; ONE DOSAGE FORM IS ONE DROP
  5. MAGNESIUM 400 MG (BIOLECTRA) [Concomitant]
     Indication: CONSTIPATION
     Dosage: 800 MILLIGRAM DAILY;
  6. PREGABALIN. [Concomitant]
     Active Substance: PREGABALIN
     Indication: MYALGIA
     Dosage: 25 MILLIGRAM DAILY;

REACTIONS (32)
  - Drug dependence [Recovered/Resolved]
  - Bradycardia [Not Recovered/Not Resolved]
  - Low density lipoprotein increased [Not Recovered/Not Resolved]
  - Decreased appetite [Not Recovered/Not Resolved]
  - Aggression [Not Recovered/Not Resolved]
  - Incorrect dose administered [Unknown]
  - Blood pressure fluctuation [Not Recovered/Not Resolved]
  - Fatigue [Not Recovered/Not Resolved]
  - Slow response to stimuli [Not Recovered/Not Resolved]
  - Dizziness [Not Recovered/Not Resolved]
  - Flatulence [Not Recovered/Not Resolved]
  - Liver function test increased [Not Recovered/Not Resolved]
  - Dry eye [Not Recovered/Not Resolved]
  - Diplopia [Not Recovered/Not Resolved]
  - Depression [Not Recovered/Not Resolved]
  - Headache [Not Recovered/Not Resolved]
  - Hypertension [Not Recovered/Not Resolved]
  - Migraine [Not Recovered/Not Resolved]
  - Feeling of despair [Not Recovered/Not Resolved]
  - Incontinence [Not Recovered/Not Resolved]
  - Salivary hypersecretion [Not Recovered/Not Resolved]
  - Insomnia [Not Recovered/Not Resolved]
  - Sedation [Not Recovered/Not Resolved]
  - Breast pain [Not Recovered/Not Resolved]
  - Weight decreased [Not Recovered/Not Resolved]
  - Constipation [Not Recovered/Not Resolved]
  - Rhinorrhoea [Not Recovered/Not Resolved]
  - Dry mouth [Not Recovered/Not Resolved]
  - Urinary retention [Not Recovered/Not Resolved]
  - Tremor [Not Recovered/Not Resolved]
  - Personality change [Not Recovered/Not Resolved]
  - Malaise [Not Recovered/Not Resolved]

NARRATIVE: CASE EVENT DATE: 2005
